FAERS Safety Report 9571511 (Version 1)
Quarter: 2013Q4

REPORT INFORMATION
  Report Type: Spontaneous
  Country: US (occurrence: US)
  Receive Date: 20131001
  Receipt Date: 20131001
  Transmission Date: 20140711
  Serious: No
  Sender: FDA-Public Use
  Company Number: US-PFIZER INC-2013276357

PATIENT
  Sex: Female

DRUGS (11)
  1. CORTISONE ACETATE [Suspect]
     Dosage: UNK
  2. GABAPENTIN [Suspect]
     Dosage: UNK
  3. GUAIFENESIN [Suspect]
     Dosage: UNK
  4. HYDROCORTISONE [Suspect]
     Dosage: UNK
  5. PREGABALIN [Suspect]
     Dosage: UNK
  6. RABEPRAZOLE SODIUM [Suspect]
     Dosage: UNK
  7. TOPIRAMATE [Suspect]
     Dosage: UNK
  8. ZOLPIDEM TARTRATE [Suspect]
     Dosage: UNK
  9. CODEINE PHOSPHATE [Suspect]
     Dosage: UNK
  10. METFORMIN HYDROCHLORIDE [Suspect]
     Dosage: UNK
  11. DULOXETINE HYDROCHLORIDE [Suspect]
     Dosage: UNK

REACTIONS (1)
  - Drug hypersensitivity [Unknown]
